FAERS Safety Report 6936191-8 (Version None)
Quarter: 2010Q3

REPORT INFORMATION
  Report Type: 
  Country: None (occurrence: None)
  Receive Date: 20100823
  Receipt Date: 20100811
  Transmission Date: 20110219
  Serious: Yes (Other)
  Sender: FDA-Public Use
  Company Number: GB-PFIZER INC-2010101352

PATIENT
  Age: 47 Year
  Sex: Male
  Weight: 99 kg

DRUGS (3)
  1. CHAMPIX [Suspect]
     Indication: SMOKING CESSATION THERAPY
     Dosage: UNK
     Route: 048
     Dates: start: 20100707, end: 20100727
  2. MIRTAZAPINE [Interacting]
     Indication: MORBID THOUGHTS
     Dosage: 15 MG, UNK
     Route: 048
     Dates: start: 20100723, end: 20100727
  3. FLIXONASE [Concomitant]
     Dosage: UNK
     Dates: start: 20100401

REACTIONS (6)
  - APATHY [None]
  - DEPRESSED MOOD [None]
  - DISTURBANCE IN ATTENTION [None]
  - DRUG INTERACTION [None]
  - SKIN BURNING SENSATION [None]
  - TREMOR [None]
